FAERS Safety Report 20029065 (Version 2)
Quarter: 2022Q4

REPORT INFORMATION
  Report Type: Spontaneous
  Country: US (occurrence: US)
  Receive Date: 20211103
  Receipt Date: 20221208
  Transmission Date: 20230112
  Serious: No
  Sender: FDA-Public Use
  Company Number: US-EyePoint Pharmaceuticals, Inc.-US-EYP-21-00098

PATIENT
  Age: 72 Year
  Sex: Male

DRUGS (2)
  1. YUTIQ [Suspect]
     Active Substance: FLUOCINOLONE ACETONIDE
     Indication: Retinal vasculitis
     Dosage: IN THE LEFT EYE (OS)
     Route: 031
     Dates: start: 20210730
  2. YUTIQ [Suspect]
     Active Substance: FLUOCINOLONE ACETONIDE
     Dosage: IN THE RIGHT EYE (OD)
     Route: 031
     Dates: start: 20210813

REACTIONS (4)
  - Product quality issue [Unknown]
  - Product dose omission issue [Recovered/Resolved]
  - Off label use [Unknown]
  - No adverse event [Unknown]

NARRATIVE: CASE EVENT DATE: 20210730
